FAERS Safety Report 6918052-3 (Version None)
Quarter: 2010Q3

REPORT INFORMATION
  Report Type: 
  Country: None (occurrence: None)
  Receive Date: 20100810
  Receipt Date: 20091013
  Transmission Date: 20110219
  Serious: No
  Sender: FDA-Public Use
  Company Number: US-PFIZER INC-2009263944

PATIENT
  Sex: Male
  Weight: 77.1 kg

DRUGS (5)
  1. TOVIAZ [Suspect]
     Dosage: 8 MG, 1X/DAY
     Route: 048
     Dates: start: 20090820
  2. WARFARIN SODIUM [Concomitant]
     Dosage: UNK
  3. METOPROLOL [Concomitant]
     Dosage: UNK
  4. QUININE [Concomitant]
     Indication: MUSCLE SPASMS
     Dosage: UNK
  5. MUCINEX [Concomitant]
     Dosage: UNK

REACTIONS (3)
  - DIZZINESS [None]
  - DRY MOUTH [None]
  - HEADACHE [None]
